FAERS Safety Report 22140536 (Version 2)
Quarter: 2023Q1

REPORT INFORMATION
  Report Type: Report from Study
  Country: US (occurrence: US)
  Receive Date: 20230327
  Receipt Date: 20230328
  Transmission Date: 20230418
  Serious: No
  Sender: FDA-Public Use
  Company Number: US-002147023-NVSC2023US067922

PATIENT
  Sex: Female
  Weight: 47.63 kg

DRUGS (1)
  1. COSENTYX [Suspect]
     Active Substance: SECUKINUMAB
     Indication: Psoriasis
     Dosage: 150 MG, OTHER (ONCE A WEEK FOR 5 WEEKS (AT 300MG) THEN ONCE A MONTH (AT 150MG))
     Route: 058
     Dates: start: 20230223

REACTIONS (2)
  - Pharyngitis [Unknown]
  - Off label use [Unknown]
